FAERS Safety Report 25732388 (Version 1)
Quarter: 2025Q3

REPORT INFORMATION
  Report Type: Spontaneous
  Country: US (occurrence: US)
  Receive Date: 20250827
  Receipt Date: 20250827
  Transmission Date: 20251020
  Serious: Yes (Life-Threatening, Hospitalization, Other)
  Sender: B. BRAUN MEDICAL INC.
  Company Number: None

PATIENT
  Age: 65 Year
  Sex: Male

DRUGS (2)
  1. MIDAZOLAM [Suspect]
     Active Substance: MIDAZOLAM
     Indication: Agitation
  2. NALOXONE [Concomitant]
     Active Substance: NALOXONE
     Indication: Overdose

REACTIONS (2)
  - Respiratory acidosis [Unknown]
  - Respiratory failure [Unknown]
